FAERS Safety Report 17754267 (Version 3)
Quarter: 2020Q3

REPORT INFORMATION
  Report Type: Report from Study
  Country: US (occurrence: US)
  Receive Date: 20200507
  Receipt Date: 20200709
  Transmission Date: 20201102
  Serious: Yes (Other)
  Sender: FDA-Public Use
  Company Number: US-ASTELLAS-2020US015601

PATIENT
  Age: 75 Year
  Sex: Male

DRUGS (2)
  1. ENZALUTAMIDE [Suspect]
     Active Substance: ENZALUTAMIDE
     Dosage: UNK UNK, UNKNOWN FREQ.
     Route: 065
     Dates: start: 20200506
  2. ENZALUTAMIDE [Suspect]
     Active Substance: ENZALUTAMIDE
     Indication: PRODUCT USED FOR UNKNOWN INDICATION
     Route: 048
     Dates: start: 202001

REACTIONS (12)
  - Feeling abnormal [Unknown]
  - Hyperhidrosis [Unknown]
  - Confusional state [Unknown]
  - Disorientation [Unknown]
  - Blood pressure increased [Unknown]
  - Hypersensitivity [Unknown]
  - Seasonal allergy [Unknown]
  - Seizure like phenomena [Unknown]
  - Visual impairment [Unknown]
  - Abnormal dreams [Unknown]
  - Fatigue [Unknown]
  - Balance disorder [Unknown]

NARRATIVE: CASE EVENT DATE: 20200504
